FAERS Safety Report 4331125-7 (Version None)
Quarter: 2004Q1

REPORT INFORMATION
  Report Type: 
  Country: None (occurrence: None)
  Receive Date: 20040331
  Receipt Date: 20040323
  Transmission Date: 20041129
  Serious: Yes (Hospitalization)
  Sender: FDA-Public Use
  Company Number: US-SHR-04-020255

PATIENT
  Age: 55 Year
  Sex: Female
  Weight: 60 kg

DRUGS (1)
  1. BETASERON [Suspect]
     Indication: MULTIPLE SCLEROSIS
     Dosage: 0, SUBCUTANEOUS
     Route: 058
     Dates: start: 20031113

REACTIONS (4)
  - BONE PAIN [None]
  - DYSPNOEA [None]
  - EYE DISORDER [None]
  - PARALYSIS [None]
